FAERS Safety Report 20357552 (Version 6)
Quarter: 2022Q1

REPORT INFORMATION
  Report Type: Report from Study
  Country: JP (occurrence: None)
  Receive Date: 20220120
  Receipt Date: 20220323
  Transmission Date: 20220423
  Serious: Yes (Hospitalization)
  Sender: FDA-Public Use
  Company Number: JP-ROCHE-3002690

PATIENT
  Age: 78 Year
  Sex: Female
  Weight: 47 kg

DRUGS (13)
  1. ATEZOLIZUMAB [Suspect]
     Active Substance: ATEZOLIZUMAB
     Indication: Triple negative breast cancer
     Dosage: ON 20/OCT/2021 MOST RECENT DOSE (840 MG) OF ATEZOLIZUMAB PRIOR TO SAE ONSET
     Route: 041
     Dates: start: 20210714
  2. PACLITAXEL [Suspect]
     Active Substance: PACLITAXEL
     Indication: Triple negative breast cancer
     Dosage: ON 13/OCT/2021 MOST RECENT DOSE (10 MG) OF PACLITAXEL PRIOR TO AE ONSET
     Route: 042
     Dates: start: 20210714
  3. CYCLOPHOSPHAMIDE [Suspect]
     Active Substance: CYCLOPHOSPHAMIDE
     Indication: Triple negative breast cancer
     Dosage: ON 22/DEC/2021 MOST RECENT DOSE (890 MG) OF CYCLOPHOSPHAMIDE PRIOR TO SAE ONSET
     Route: 042
     Dates: start: 20211020
  4. EPIRUBICIN [Suspect]
     Active Substance: EPIRUBICIN
     Indication: Triple negative breast cancer
     Dosage: ON 22/DEC/2021 MOST RECENT DOSE (130 MG) OF EPIRUBICIN PRIOR TO AE ONSET
     Route: 042
     Dates: start: 20211020
  5. PEGFILGRASTIM [Suspect]
     Active Substance: PEGFILGRASTIM
     Indication: Triple negative breast cancer
     Dosage: CYCLE 4 VISIT 1
     Route: 058
     Dates: start: 20211021, end: 20211021
  6. PEGFILGRASTIM [Suspect]
     Active Substance: PEGFILGRASTIM
     Dosage: CYCLE 4 VISIT 2
     Route: 058
     Dates: start: 20211120, end: 20211120
  7. PEGFILGRASTIM [Suspect]
     Active Substance: PEGFILGRASTIM
     Dosage: CYCLE 5 VISIT 1
     Route: 058
     Dates: start: 20211209, end: 20211209
  8. PEGFILGRASTIM [Suspect]
     Active Substance: PEGFILGRASTIM
     Dosage: CYCLE 5 VISIT 2
     Route: 058
     Dates: start: 20211223, end: 20211223
  9. AMINO ACIDS\DEXTROSE\ELECTROLYTES NOS\VITAMINS [Concomitant]
     Active Substance: AMINO ACIDS\DEXTROSE\ELECTROLYTES NOS\VITAMINS
     Dates: start: 20220108, end: 20220108
  10. CEFCAPENE PIVOXIL HYDROCHLORIDE [Concomitant]
     Active Substance: CEFCAPENE PIVOXIL HYDROCHLORIDE
     Dates: start: 20220105, end: 20220107
  11. CALONAL [Concomitant]
     Active Substance: ACETAMINOPHEN
     Dates: start: 20220103
  12. HERBALS [Concomitant]
     Active Substance: HERBALS
     Dates: start: 20220103, end: 20220105
  13. PREDONINE [Concomitant]
     Active Substance: PREDNISOLONE
     Dates: start: 20220117, end: 20220121

REACTIONS (1)
  - Interstitial lung disease [Recovered/Resolved]

NARRATIVE: CASE EVENT DATE: 20211227
